FAERS Safety Report 19011394 (Version 1)
Quarter: 2021Q1

REPORT INFORMATION
  Report Type: Spontaneous
  Country: US (occurrence: US)
  Receive Date: 20210315
  Receipt Date: 20210315
  Transmission Date: 20210420
  Serious: Yes (Other)
  Sender: FDA-Public Use
  Company Number: US-APRECIA PHARMACEUTICALS-APRE20210038

PATIENT
  Age: 16 Year
  Sex: Female

DRUGS (2)
  1. SPRITAM [Suspect]
     Active Substance: LEVETIRACETAM
     Indication: EPILEPSY
     Dosage: 1250 MG
     Route: 048
     Dates: start: 2020
  2. SPRITAM [Suspect]
     Active Substance: LEVETIRACETAM
     Indication: PARTIAL SEIZURES

REACTIONS (2)
  - Epistaxis [Recovered/Resolved]
  - Seizure [Recovered/Resolved]

NARRATIVE: CASE EVENT DATE: 202009
